FAERS Safety Report 8533003-6 (Version None)
Quarter: 2012Q3

REPORT INFORMATION
  Report Type: 
  Country: None (occurrence: None)
  Receive Date: 20120712
  Receipt Date: 20120703
  Transmission Date: 20120928
  Serious: Yes (Hospitalization)
  Sender: FDA-Public Use
  Company Number: 2012HGS-003761

PATIENT
  Age: 59 Year
  Sex: Female

DRUGS (18)
  1. CELLCEPT [Concomitant]
  2. BENLYSTA [Suspect]
     Indication: SYSTEMIC LUPUS ERYTHEMATOSUS
     Dosage: 10 MG/KG, INTRAVENOUS DRIP
     Route: 041
     Dates: start: 20120518, end: 20120518
  3. COLACE (DOCUSATE SODIUM) [Concomitant]
  4. CYMBALTA [Concomitant]
  5. FOLATE (FOLIC ACID) [Concomitant]
  6. NAPROXEN [Concomitant]
  7. VITAMIN D [Concomitant]
  8. PROMETHAZINE [Concomitant]
  9. TOPAMAX [Concomitant]
  10. PREMPRO (PROVELLA-14) (MEDROXYPROGESTERONE ACETATE, ESTROGENS CONJUGAT [Concomitant]
  11. NEURONTIN [Concomitant]
  12. ENDOCET (OXYCOCET) (PARACETAMOL, OXYCODONE HYDROCHLORIDE) [Concomitant]
  13. ASPIRIN [Concomitant]
  14. POTTASIUM [Concomitant]
  15. LASIX [Concomitant]
  16. AMBIEN [Concomitant]
  17. PREDNISONE [Concomitant]
  18. ZOFRAN [Concomitant]

REACTIONS (11)
  - DEHYDRATION [None]
  - GASTRITIS [None]
  - NON-CARDIAC CHEST PAIN [None]
  - BRADYCARDIA [None]
  - NAUSEA [None]
  - DEPRESSED MOOD [None]
  - NIGHTMARE [None]
  - VOMITING [None]
  - MUSCULOSKELETAL CHEST PAIN [None]
  - SUICIDAL IDEATION [None]
  - ANXIETY DISORDER [None]
